FAERS Safety Report 16962843 (Version 1)
Quarter: 2019Q4

REPORT INFORMATION
  Report Type: Report from Study
  Country: BE (occurrence: BE)
  Receive Date: 20191025
  Receipt Date: 20191025
  Transmission Date: 20200122
  Serious: Yes (Hospitalization)
  Sender: FDA-Public Use
  Company Number: BE-VIIV HEALTHCARE LIMITED-BE2019EME140252

PATIENT

DRUGS (4)
  1. CABOTEGRAVIR [Suspect]
     Active Substance: CABOTEGRAVIR
     Dosage: 400 MG, UNK
     Route: 030
     Dates: start: 20190730
  2. CABOTEGRAVIR [Suspect]
     Active Substance: CABOTEGRAVIR
     Indication: HIV INFECTION
     Dosage: 200 MG/ML, UNK
     Route: 030
     Dates: start: 20190702
  3. CABOTEGRAVIR [Suspect]
     Active Substance: CABOTEGRAVIR
     Dosage: 600 MG, UNK
     Route: 030
     Dates: start: 20190707
  4. RILPIVIRINE [Suspect]
     Active Substance: RILPIVIRINE
     Indication: HIV INFECTION
     Dosage: 300 MG/ML, UNK
     Route: 030
     Dates: start: 20190702

REACTIONS (1)
  - Nasal vestibulitis [Recovered/Resolved]

NARRATIVE: CASE EVENT DATE: 20190725
